FAERS Safety Report 12808607 (Version 2)
Quarter: 2016Q4

REPORT INFORMATION
  Report Type: Report from Study
  Country: US (occurrence: US)
  Receive Date: 20161004
  Receipt Date: 20161006
  Transmission Date: 20170207
  Serious: Yes (Hospitalization, Other)
  Sender: FDA-Public Use
  Company Number: US-009507513-1609USA012734

PATIENT
  Age: 62 Year
  Sex: Female

DRUGS (1)
  1. JANUMET [Suspect]
     Active Substance: METFORMIN HYDROCHLORIDE\SITAGLIPTIN PHOSPHATE
     Dosage: UNK
     Route: 048
     Dates: start: 1992

REACTIONS (6)
  - Pneumonia [Unknown]
  - Decreased appetite [Unknown]
  - Visual acuity reduced [Unknown]
  - Weight decreased [Unknown]
  - Blood glucose increased [Unknown]
  - Bronchitis [Unknown]
